FAERS Safety Report 7546160-5 (Version None)
Quarter: 2011Q2

REPORT INFORMATION
  Report Type: 
  Country: None (occurrence: None)
  Receive Date: 20110614
  Receipt Date: 20030917
  Transmission Date: 20111010
  Serious: Yes (Death)
  Sender: FDA-Public Use
  Company Number: PHNR2003AU01163

PATIENT
  Sex: Male

DRUGS (2)
  1. CLOZAPINE [Suspect]
     Indication: SCHIZOPHRENIA
     Dosage: 25 - 350 MG, QD
     Dates: start: 19961001, end: 19980701
  2. CLOZAPINE [Suspect]
     Dosage: 12 - 250 MG, QD
     Dates: start: 19981126

REACTIONS (1)
  - MYOCARDIAL INFARCTION [None]
